FAERS Safety Report 16189276 (Version 2)
Quarter: 2019Q2

REPORT INFORMATION
  Report Type: Spontaneous
  Country: US (occurrence: US)
  Receive Date: 20190412
  Receipt Date: 20190502
  Transmission Date: 20190711
  Serious: No
  Sender: FDA-Public Use
  Company Number: US-GLAXOSMITHKLINE-US2019GSK031378

PATIENT
  Age: 42 Year
  Sex: Female

DRUGS (10)
  1. ANORO ELLIPTA [Suspect]
     Active Substance: UMECLIDINIUM BROMIDE\VILANTEROL TRIFENATATE
     Indication: CHRONIC OBSTRUCTIVE PULMONARY DISEASE
  2. REVATIO [Suspect]
     Active Substance: SILDENAFIL CITRATE
     Indication: PULMONARY ARTERIAL HYPERTENSION
     Dosage: 20 MG, TID
     Route: 048
  3. SPIRONOLACTONE TABLET [Concomitant]
     Active Substance: SPIRONOLACTONE
     Indication: DIURETIC THERAPY
     Dosage: 25 MG, QD
     Route: 048
     Dates: start: 2014
  4. KLOR-CON TABLET [Concomitant]
     Indication: MINERAL SUPPLEMENTATION
     Dosage: 1 TABLET, QD
     Route: 048
     Dates: start: 2014
  5. ANORO ELLIPTA [Suspect]
     Active Substance: UMECLIDINIUM BROMIDE\VILANTEROL TRIFENATATE
     Indication: PULMONARY ARTERIAL HYPERTENSION
     Dosage: ONCE DAILY IN THE MORNING
     Route: 055
     Dates: start: 201809, end: 201810
  6. VENTOLIN [Suspect]
     Active Substance: ALBUTEROL SULFATE
     Indication: PULMONARY ARTERIAL HYPERTENSION
     Dosage: 2 PUFF(S), PRN
     Route: 055
     Dates: start: 2003
  7. SOTALOL TABLET [Concomitant]
     Indication: ATRIAL FLUTTER
     Dosage: 80 MG, UNK
     Route: 048
     Dates: start: 201802
  8. BEVESPI AEROSPHERE [Suspect]
     Active Substance: FORMOTEROL FUMARATE\GLYCOPYRROLATE
     Indication: PULMONARY ARTERIAL HYPERTENSION
     Dosage: UNK, BID
     Route: 055
     Dates: start: 201810, end: 201810
  9. BEVESPI AEROSPHERE [Suspect]
     Active Substance: FORMOTEROL FUMARATE\GLYCOPYRROLATE
     Indication: DYSPNOEA
  10. TORSEMIDE TABLET [Concomitant]
     Indication: DIURETIC THERAPY
     Dosage: HALF TABLET BY MOUTH DAILY, THEN ONE TABLET BY MOUTH ON MONDAYS AND THURSDAYS
     Route: 048
     Dates: start: 2014

REACTIONS (9)
  - Adverse drug reaction [Recovered/Resolved]
  - Burning sensation [Unknown]
  - Eye swelling [Unknown]
  - Off label use [Unknown]
  - Product use in unapproved indication [Unknown]
  - Therapeutic product effect incomplete [Unknown]
  - Dyspnoea [Unknown]
  - Device use error [Unknown]
  - Feeling abnormal [Unknown]

NARRATIVE: CASE EVENT DATE: 201809
